FAERS Safety Report 13541139 (Version 4)
Quarter: 2017Q4

REPORT INFORMATION
  Report Type: Spontaneous
  Country: US (occurrence: US)
  Receive Date: 20170512
  Receipt Date: 20171003
  Transmission Date: 20180320
  Serious: No
  Sender: FDA-Public Use
  Company Number: US-SHIRE-US201710569

PATIENT
  Age: 61 Year
  Sex: Female
  Weight: 56.69 kg

DRUGS (1)
  1. XIIDRA [Suspect]
     Active Substance: LIFITEGRAST
     Indication: DRY EYE
     Dosage: 1 GTT(RIGHT EYE), 2X/DAY:BID
     Route: 047
     Dates: start: 20170510

REACTIONS (9)
  - Instillation site discharge [Not Recovered/Not Resolved]
  - Product use complaint [Unknown]
  - Abnormal sensation in eye [Recovered/Resolved]
  - Dysgeusia [Recovered/Resolved]
  - Product quality issue [Not Recovered/Not Resolved]
  - Vision blurred [Not Recovered/Not Resolved]
  - Wrong technique in product usage process [Unknown]
  - Therapeutic response unexpected [Unknown]
  - Drug ineffective [Unknown]

NARRATIVE: CASE EVENT DATE: 201705
